FAERS Safety Report 8268495-3 (Version None)
Quarter: 2012Q2

REPORT INFORMATION
  Report Type: 
  Country: None (occurrence: None)
  Receive Date: 20120409
  Receipt Date: 20120405
  Transmission Date: 20120825
  Serious: Yes (Hospitalization)
  Sender: FDA-Public Use
  Company Number: PHHY2012CH027920

PATIENT
  Sex: Female

DRUGS (3)
  1. AFINITOR [Suspect]
     Indication: RENAL CANCER
     Dosage: 10 MG, DAILY
     Route: 048
     Dates: start: 20110819, end: 20120321
  2. PANTOPRAZOLE [Concomitant]
  3. METFORMIN HCL [Concomitant]

REACTIONS (4)
  - PAIN IN EXTREMITY [None]
  - OSTEONECROSIS [None]
  - SWELLING [None]
  - FEELING HOT [None]
